FAERS Safety Report 19859086 (Version 2)
Quarter: 2021Q4

REPORT INFORMATION
  Report Type: Spontaneous
  Country: US (occurrence: US)
  Receive Date: 20210921
  Receipt Date: 20211018
  Transmission Date: 20220304
  Serious: No
  Sender: FDA-Public Use
  Company Number: US-SCIEGENPHARMA-2021SCISPO00781

PATIENT
  Age: 70 Year
  Sex: Female
  Weight: 88.4 kg

DRUGS (3)
  1. NABUMETONE [Suspect]
     Active Substance: NABUMETONE
     Indication: Fibromyalgia
     Route: 048
     Dates: start: 202108
  2. NABUMETONE [Suspect]
     Active Substance: NABUMETONE
     Indication: Osteoarthritis
  3. NABUMETONE [Suspect]
     Active Substance: NABUMETONE
     Indication: Intervertebral disc degeneration

REACTIONS (6)
  - Irritable bowel syndrome [Not Recovered/Not Resolved]
  - Anal inflammation [Not Recovered/Not Resolved]
  - Pain [Not Recovered/Not Resolved]
  - Constipation [Not Recovered/Not Resolved]
  - Product substitution issue [None]
  - Product use in unapproved indication [None]

NARRATIVE: CASE EVENT DATE: 20210801
